FAERS Safety Report 20461586 (Version 2)
Quarter: 2022Q1

REPORT INFORMATION
  Report Type: Spontaneous
  Country: US (occurrence: US)
  Receive Date: 20220211
  Receipt Date: 20220215
  Transmission Date: 20220424
  Serious: Yes (Other)
  Sender: FDA-Public Use
  Company Number: US-JNJFOC-20220213236

PATIENT
  Age: 58 Year
  Sex: Female

DRUGS (3)
  1. STELARA [Suspect]
     Active Substance: USTEKINUMAB
     Indication: Crohn^s disease
     Dosage: STELARA PRE-FILLED SYRINGE - ULTRASAFE 90.00 MG/ML
     Route: 058
     Dates: start: 201909
  2. STELARA [Suspect]
     Active Substance: USTEKINUMAB
  3. LISINOPRIL [Concomitant]
     Active Substance: LISINOPRIL
     Indication: Hypertension
     Route: 065

REACTIONS (5)
  - Crohn^s disease [Unknown]
  - Syringe issue [Unknown]
  - Underdose [Unknown]
  - Drug level below therapeutic [Unknown]
  - Device breakage [Unknown]

NARRATIVE: CASE EVENT DATE: 20211201
